FAERS Safety Report 4496549-6 (Version None)
Quarter: 2004Q4

REPORT INFORMATION
  Report Type: 
  Country: None (occurrence: None)
  Receive Date: 20041109
  Receipt Date: 20040614
  Transmission Date: 20050328
  Serious: No
  Sender: FDA-Public Use
  Company Number: US-BRISTOL-MYERS SQUIBB COMPANY-12615142

PATIENT
  Sex: Female

DRUGS (4)
  1. AMPICILLIN [Suspect]
     Indication: CYSTITIS
     Dosage: 11-MAR-2004 FOR 7 DAYS, AGAIN IN JUN-2004
     Dates: start: 20040311
  2. TRIMETHOPRIM + SULFAMETHOXAZOLE [Concomitant]
     Dates: start: 20040101
  3. PREMARIN [Concomitant]
  4. SYNTHROID [Concomitant]

REACTIONS (3)
  - DIZZINESS [None]
  - ERYTHEMA [None]
  - URINARY TRACT PAIN [None]
